FAERS Safety Report 10083536 (Version 1)
Quarter: 2014Q2

REPORT INFORMATION
  Report Type: Spontaneous
  Country: US (occurrence: US)
  Receive Date: 20140417
  Receipt Date: 20140417
  Transmission Date: 20141212
  Serious: No
  Sender: FDA-Public Use
  Company Number: US-BAYER-2014-056984

PATIENT
  Age: 71 Year
  Sex: Female
  Weight: 57.6 kg

DRUGS (7)
  1. ALEVE CAPLET [Suspect]
     Indication: ARTHRITIS
     Dosage: 1 DF, PRN
     Route: 048
     Dates: start: 20140414
  2. CORTIZONE [Concomitant]
  3. KEPRA [Concomitant]
  4. LACOSAMIDE [Concomitant]
  5. PLAQUENIL [Concomitant]
  6. METOPROLOL TARTRATE [Concomitant]
  7. BAYER ASPIRIN REGIMEN ADULT LOW STRENGTH [Concomitant]
     Indication: ISCHAEMIC HEART DISEASE PROPHYLAXIS
     Dosage: 1 DF, QD
     Route: 048

REACTIONS (1)
  - Drug ineffective [None]
